FAERS Safety Report 10881561 (Version 2)
Quarter: 2015Q1

REPORT INFORMATION
  Report Type: Spontaneous
  Country: US (occurrence: US)
  Receive Date: 20150226
  Receipt Date: 20150326
  Transmission Date: 20150721
  Serious: No
  Sender: FDA-Public Use
  Company Number: US-PFIZER INC-2015067793

PATIENT
  Age: 51 Year
  Sex: Male
  Weight: 100 kg

DRUGS (8)
  1. SEROQUEL [Interacting]
     Active Substance: QUETIAPINE FUMARATE
     Indication: DEPRESSION
     Dosage: 50 MG, 1X/DAY
     Dates: start: 201412
  2. MINIPRESS [Concomitant]
     Active Substance: PRAZOSIN HYDROCHLORIDE
     Dosage: UNK
  3. LAMOTRIGINE. [Concomitant]
     Active Substance: LAMOTRIGINE
     Dosage: UNK
  4. VIAGRA [Suspect]
     Active Substance: SILDENAFIL CITRATE
     Dosage: 100 MG TABLET WHICH HE BREAKS IN HALF OR INTO FOURTHS
     Dates: end: 201501
  5. CLONAZEPAM. [Interacting]
     Active Substance: CLONAZEPAM
     Indication: DEPRESSION
     Dosage: 2 MG, 2X/DAY
     Dates: start: 2005
  6. VIAGRA [Interacting]
     Active Substance: SILDENAFIL CITRATE
     Indication: PROSTATE CANCER
  7. STRATTERA [Concomitant]
     Active Substance: ATOMOXETINE HYDROCHLORIDE
     Indication: ATTENTION DEFICIT/HYPERACTIVITY DISORDER
     Dosage: UNK
  8. SEROQUEL [Interacting]
     Active Substance: QUETIAPINE FUMARATE
     Indication: SLEEP DISORDER

REACTIONS (2)
  - Drug interaction [Not Recovered/Not Resolved]
  - Drug effect incomplete [Not Recovered/Not Resolved]

NARRATIVE: CASE EVENT DATE: 201501
